FAERS Safety Report 12248835 (Version 1)
Quarter: 2016Q2

REPORT INFORMATION
  Report Type: Spontaneous
  Country: US (occurrence: None)
  Receive Date: 20160407
  Receipt Date: 20160407
  Transmission Date: 20160815
  Serious: Yes (Other)
  Sender: FDA-Public Use
  Company Number: None

PATIENT
  Age: 50 Year
  Sex: Male
  Weight: 104.33 kg

DRUGS (5)
  1. MINERAL SUPPLEMENT [Concomitant]
  2. VITAMIN [Concomitant]
     Active Substance: VITAMINS
  3. TEGRETOL [Suspect]
     Active Substance: CARBAMAZEPINE
  4. OLANZAPINE, 15 MG [Suspect]
     Active Substance: OLANZAPINE
     Indication: SCHIZOAFFECTIVE DISORDER
     Dosage: 1 TABLET(S) ONCE A DAY TAKEN BY MOUTH
     Route: 048
  5. ABILIFY [Concomitant]
     Active Substance: ARIPIPRAZOLE

REACTIONS (1)
  - Male genital atrophy [None]
